FAERS Safety Report 5592448-7 (Version None)
Quarter: 2008Q1

REPORT INFORMATION
  Report Type: 
  Country: None (occurrence: None)
  Receive Date: 20080115
  Receipt Date: 20080111
  Transmission Date: 20080703
  Serious: Yes (Other)
  Sender: FDA-Public Use
  Company Number: FR-MERCK-0801FRA00046

PATIENT
  Age: 38 Year
  Sex: Male

DRUGS (6)
  1. PRIMAXIN [Suspect]
     Indication: INFECTION
     Route: 042
     Dates: start: 20071117, end: 20071121
  2. PRIMAXIN [Suspect]
     Route: 042
     Dates: start: 20071121
  3. CIPROFLOXACIN HYDROCHLORIDE [Suspect]
     Indication: INFECTION
     Route: 048
     Dates: start: 20071116
  4. METHADONE HYDROCHLORIDE [Concomitant]
     Indication: DRUG DEPENDENCE
     Route: 065
  5. MORPHINE SULFATE [Concomitant]
     Route: 065
  6. CARBAMAZEPINE [Concomitant]
     Indication: EPILEPSY
     Route: 048

REACTIONS (1)
  - EPILEPSY [None]
